FAERS Safety Report 22017829 (Version 12)
Quarter: 2023Q4

REPORT INFORMATION
  Report Type: Spontaneous
  Country: US (occurrence: US)
  Receive Date: 20230221
  Receipt Date: 20231025
  Transmission Date: 20240110
  Serious: Yes (Death, Hospitalization, Other)
  Sender: FDA-Public Use
  Company Number: US-KARYOPHARM-2023KPT000581

PATIENT

DRUGS (25)
  1. XPOVIO [Suspect]
     Active Substance: SELINEXOR
     Indication: Plasma cell myeloma
     Dosage: 60 MG, WEEKLY FOR 3 WEEKS ON AND 1 WEEK OFF
     Route: 048
     Dates: start: 20230125, end: 20230207
  2. XPOVIO [Suspect]
     Active Substance: SELINEXOR
     Dosage: 60 MG, WEEKLY FOR 3 WEEKS ON AND 1 WEEK OFF
     Route: 048
     Dates: end: 20230314
  3. XPOVIO [Suspect]
     Active Substance: SELINEXOR
     Dosage: 60 MG, WEEKLY FOR 3 WEEKS ON AND 1 WEEK OFF
     Route: 048
     Dates: start: 2023, end: 202307
  4. XPOVIO [Suspect]
     Active Substance: SELINEXOR
     Dosage: 60 MG, WEEKLY
     Route: 048
     Dates: start: 2023, end: 202308
  5. XPOVIO [Suspect]
     Active Substance: SELINEXOR
     Dosage: 60 MG, WEEKLY
     Route: 048
     Dates: start: 2023, end: 2023
  6. XPOVIO [Suspect]
     Active Substance: SELINEXOR
     Dosage: 60 MG, WEEKLY FOR 3 WEEKS ON AND 1 WEEK OFF
     Route: 048
     Dates: start: 2023, end: 202310
  7. ACYCLOVIR [Concomitant]
     Active Substance: ACYCLOVIR
  8. ALLOPURINOL [Concomitant]
     Active Substance: ALLOPURINOL
  9. CYANOCOBALAMIN [Concomitant]
     Active Substance: CYANOCOBALAMIN
  10. ELIQUIS [Concomitant]
     Active Substance: APIXABAN
  11. INSULIN GLARGINE [Concomitant]
     Active Substance: INSULIN GLARGINE
  12. LASIX [Concomitant]
     Active Substance: FUROSEMIDE
  13. LEVOTHYROXINE [Concomitant]
     Active Substance: LEVOTHYROXINE
  14. LIPITOR [Concomitant]
     Active Substance: ATORVASTATIN CALCIUM
  15. MAGNESIUM OXIDE [Concomitant]
     Active Substance: MAGNESIUM OXIDE
  16. METOPROLOL SUCCINATE [Concomitant]
     Active Substance: METOPROLOL SUCCINATE
  17. MIDODRINE [Concomitant]
     Active Substance: MIDODRINE
  18. NYSTATIN ACTAVIS [Concomitant]
  19. ONDANSETRON [Concomitant]
     Active Substance: ONDANSETRON
  20. PEPCID [Concomitant]
     Active Substance: FAMOTIDINE
  21. POMALYST [Concomitant]
     Active Substance: POMALIDOMIDE
  22. TAMSULOSIN [Concomitant]
     Active Substance: TAMSULOSIN
  23. COLLAGENASE SANTYL [Concomitant]
     Active Substance: COLLAGENASE CLOSTRIDIUM HISTOLYTICUM
  24. URSODIOL [Concomitant]
     Active Substance: URSODIOL
  25. VARUBI [ROLAPITANT] [Concomitant]

REACTIONS (14)
  - Death [Fatal]
  - Cholecystitis [Not Recovered/Not Resolved]
  - Localised infection [Not Recovered/Not Resolved]
  - Liver abscess [Unknown]
  - Pleural effusion [Not Recovered/Not Resolved]
  - Osteomyelitis [Not Recovered/Not Resolved]
  - Wound infection [Not Recovered/Not Resolved]
  - Diabetic foot [Unknown]
  - Cardiac failure [Unknown]
  - Pneumonia [Recovering/Resolving]
  - Somnolence [Unknown]
  - Diarrhoea [Recovered/Resolved]
  - Fatigue [Unknown]
  - Neutropenia [Unknown]

NARRATIVE: CASE EVENT DATE: 20230101
